FAERS Safety Report 10260367 (Version 1)
Quarter: 2014Q2

REPORT INFORMATION
  Report Type: Spontaneous
  Country: US (occurrence: US)
  Receive Date: 20140625
  Receipt Date: 20140625
  Transmission Date: 20141212
  Serious: Yes (Hospitalization)
  Sender: FDA-Public Use
  Company Number: US-SA-2014SA078529

PATIENT
  Age: 69 Year
  Sex: Female

DRUGS (1)
  1. AUBAGIO [Suspect]
     Indication: PRODUCT USED FOR UNKNOWN INDICATION
     Route: 065

REACTIONS (5)
  - Dyspnoea [Unknown]
  - Erythema [Unknown]
  - Sleep terror [Unknown]
  - Dissociation [Unknown]
  - Rash [Unknown]
